FAERS Safety Report 12294547 (Version 2)
Quarter: 2016Q2

REPORT INFORMATION
  Report Type: Report from Study
  Country: US (occurrence: US)
  Receive Date: 20160422
  Receipt Date: 20160422
  Transmission Date: 20160815
  Serious: Yes (Other)
  Sender: FDA-Public Use
  Company Number: US-AMGEN-USASL2016016843

PATIENT
  Age: 64 Year
  Sex: Female

DRUGS (1)
  1. REPATHA [Suspect]
     Active Substance: EVOLOCUMAB
     Indication: HYPERCHOLESTEROLAEMIA
     Dosage: 140 MG, Q2WK
     Route: 065
     Dates: start: 201510

REACTIONS (9)
  - Catheterisation cardiac [Unknown]
  - Sinusitis [Recovered/Resolved]
  - Dyspnoea [Not Recovered/Not Resolved]
  - Cough [Unknown]
  - Respiratory disorder [Recovered/Resolved]
  - Malaise [Unknown]
  - Pharyngeal oedema [Unknown]
  - Respiratory tract congestion [Unknown]
  - Myalgia [Unknown]

NARRATIVE: CASE EVENT DATE: 201602
